FAERS Safety Report 6706886-X (Version None)
Quarter: 2010Q2

REPORT INFORMATION
  Report Type: 
  Country: None (occurrence: None)
  Receive Date: 20100503
  Receipt Date: 20100421
  Transmission Date: 20101027
  Serious: Yes (Other)
  Sender: FDA-Public Use
  Company Number: US-PFIZER INC-2010050732

PATIENT
  Sex: Male
  Weight: 136.05 kg

DRUGS (12)
  1. CHANTIX [Suspect]
     Indication: SMOKING CESSATION THERAPY
     Dosage: 0.5 MG, 1X/DAY
     Route: 048
     Dates: start: 20100324
  2. CHANTIX [Suspect]
     Dosage: 0.5 MG, 2X/DAY
     Route: 048
     Dates: start: 20100101, end: 20100101
  3. PROZAC [Concomitant]
     Indication: ANXIETY
     Dosage: 20 MG, 3X/DAY
     Route: 048
  4. PROZAC [Concomitant]
     Indication: PANIC ATTACK
  5. COREG [Concomitant]
     Indication: CARDIOMYOPATHY
     Dosage: 25 MG, 2X/DAY
     Route: 048
     Dates: end: 20100419
  6. DIGOXIN [Concomitant]
     Indication: CARDIOMYOPATHY
     Dosage: 0.25 MG, 1X/DAY
     Route: 048
  7. IMDUR [Concomitant]
     Indication: CARDIOMYOPATHY
     Dosage: 30 MG, 1X/DAY
     Route: 048
  8. SPIRONOLACTONE [Concomitant]
     Indication: CARDIOMYOPATHY
     Dosage: 25 MG, 1X/DAY
     Route: 048
  9. LISINOPRIL [Concomitant]
     Indication: CARDIOMYOPATHY
     Dosage: 40 MG, 1X/DAY
     Route: 048
  10. GLIPIZIDE [Concomitant]
     Indication: DIABETES MELLITUS
     Dosage: 10 MG, 1X/DAY
     Route: 048
  11. LIPITOR [Concomitant]
     Indication: BLOOD CHOLESTEROL INCREASED
     Dosage: 40 MG, 1X/DAY
     Route: 048
  12. OMEPRAZOLE [Concomitant]
     Dosage: 20 MG, 1X/DAY
     Route: 048

REACTIONS (4)
  - ANXIETY [None]
  - BLOOD PRESSURE DECREASED [None]
  - DEPRESSION [None]
  - SUICIDAL IDEATION [None]
